FAERS Safety Report 5150071-2 (Version None)
Quarter: 2006Q4

REPORT INFORMATION
  Report Type: 
  Country: None (occurrence: None)
  Receive Date: 20061113
  Receipt Date: 20061103
  Transmission Date: 20070319
  Serious: Yes (Other)
  Sender: FDA-Public Use
  Company Number: US-ABBOTT-06P-163-0349194-00

PATIENT
  Sex: Female
  Weight: 55.842 kg

DRUGS (14)
  1. HUMIRA [Suspect]
     Indication: RHEUMATOID ARTHRITIS
     Route: 058
     Dates: start: 20050501, end: 20061103
  2. ZOCOR [Concomitant]
     Indication: BLOOD CHOLESTEROL INCREASED
     Route: 048
     Dates: start: 20010101
  3. ASPIRIN [Concomitant]
     Indication: PROPHYLAXIS
     Route: 048
  4. FUROSEMIDE [Concomitant]
     Indication: DRUG USE FOR UNKNOWN INDICATION
     Route: 048
  5. LEFLUNOMIDE [Concomitant]
     Indication: RHEUMATOID ARTHRITIS
     Route: 048
  6. RISEDRONATE SODIUM [Concomitant]
     Indication: OSTEOPOROSIS
     Route: 048
  7. ESOMEPRAZOLE MAGNESIUM [Concomitant]
     Indication: STOMACH DISCOMFORT
     Route: 048
  8. LEVOTHYROXINE SODIUM [Concomitant]
     Indication: DRUG USE FOR UNKNOWN INDICATION
     Route: 048
  9. MELOXICAM [Concomitant]
     Indication: RHEUMATOID ARTHRITIS
     Route: 048
  10. GLYCERYL TRINITRATE [Concomitant]
     Indication: CHEST PAIN
     Route: 048
  11. VIACTIV [Concomitant]
     Indication: DRUG USE FOR UNKNOWN INDICATION
     Route: 048
  12. HUMALOG INSULIN PUMP [Concomitant]
     Indication: DRUG USE FOR UNKNOWN INDICATION
  13. PENTOSAN POLYSULFATE SODIUM [Concomitant]
     Indication: URINARY INCONTINENCE
     Route: 048
  14. ESTROGENS CONJUGATED [Concomitant]
     Indication: HORMONE REPLACEMENT THERAPY
     Route: 061

REACTIONS (1)
  - CORONARY ARTERY OCCLUSION [None]
